FAERS Safety Report 18886314 (Version 1)
Quarter: 2021Q1

REPORT INFORMATION
  Report Type: Spontaneous
  Country: US (occurrence: US)
  Receive Date: 20210212
  Receipt Date: 20210212
  Transmission Date: 20210420
  Serious: No
  Sender: FDA-Public Use
  Company Number: US-SA-2021SA040918

PATIENT
  Age: 55 Year
  Sex: Male

DRUGS (1)
  1. DUPIXENT [Suspect]
     Active Substance: DUPILUMAB
     Indication: NASAL POLYPS
     Dosage: 300 MG, QOW
     Route: 058
     Dates: start: 201912

REACTIONS (9)
  - Sneezing [Unknown]
  - Malaise [Unknown]
  - Ageusia [Unknown]
  - Somnolence [Unknown]
  - Arthralgia [Unknown]
  - Pain [Unknown]
  - Anosmia [Unknown]
  - Suspected COVID-19 [Unknown]
  - Weight increased [Unknown]

NARRATIVE: CASE EVENT DATE: 20201224
